FAERS Safety Report 13608718 (Version 3)
Quarter: 2017Q3

REPORT INFORMATION
  Report Type: Spontaneous
  Country: KR (occurrence: KR)
  Receive Date: 20170602
  Receipt Date: 20170803
  Transmission Date: 20171127
  Serious: Yes (Other)
  Sender: FDA-Public Use
  Company Number: KR-009507513-1705KOR015464

PATIENT
  Age: 42 Year
  Sex: Male
  Weight: 74.4 kg

DRUGS (59)
  1. UNISTIN [Concomitant]
     Dosage: 10 MG, ONCE DAILY, CYCLE 3
     Route: 042
     Dates: start: 20161223, end: 20161223
  2. UNISTIN [Concomitant]
     Dosage: 10 MG, ONCE DAILY, CYCLE 4
     Route: 042
     Dates: start: 20170113, end: 20170113
  3. UNISTIN [Concomitant]
     Indication: NON-SMALL CELL LUNG CANCER
     Dosage: 100 MG, ONCE DAILY, CYCLE 1
     Route: 042
     Dates: start: 20161111, end: 20161111
  4. UNISTIN [Concomitant]
     Dosage: 100 MG, ONCE DAILY, CYCLE 3
     Route: 042
     Dates: start: 20161223, end: 20161223
  5. ALIMTA [Concomitant]
     Active Substance: PEMETREXED DISODIUM
     Dosage: 950 MG, ONCE DAILY, CYCLE 3
     Route: 042
     Dates: start: 20161223, end: 20161223
  6. POTASSIUM CHLORIDE. [Concomitant]
     Active Substance: POTASSIUM CHLORIDE
     Indication: PROPHYLAXIS AGAINST DEHYDRATION
     Dosage: 0.5 AMPULE, TWICE DAILY
     Route: 042
     Dates: start: 20161111, end: 20161111
  7. MAGNESIUM SULFATE. [Concomitant]
     Active Substance: MAGNESIUM SULFATE
     Dosage: 0.5 AMPULE, TWICE DAILY
     Route: 042
     Dates: start: 20161202, end: 20161202
  8. MANNITOL. [Concomitant]
     Active Substance: MANNITOL
     Dosage: 1 BT, QD
     Route: 042
     Dates: start: 20161202, end: 20161202
  9. DEXAMETHASONE SODIUM PHOSPHATE. [Concomitant]
     Active Substance: DEXAMETHASONE SODIUM PHOSPHATE
     Dosage: 1 AMPULES, THRICE DAILY
     Route: 042
     Dates: start: 20170114, end: 20170114
  10. ALOXI [Concomitant]
     Active Substance: PALONOSETRON HYDROCHLORIDE
     Dosage: UNIT:1 VI, ONCE DAILY
     Route: 042
     Dates: start: 20170113, end: 20170113
  11. POTASSIUM CHLORIDE. [Concomitant]
     Active Substance: POTASSIUM CHLORIDE
     Dosage: 0.5 AMPULE, TWICE DAILY
     Route: 042
     Dates: start: 20161223, end: 20161223
  12. MAGNESIUM SULFATE. [Concomitant]
     Active Substance: MAGNESIUM SULFATE
     Dosage: 0.5 AMPULE, TWICE DAILY
     Route: 042
     Dates: start: 20161223, end: 20161223
  13. TACOPEN [Concomitant]
     Indication: CANCER PAIN
     Dosage: 2 CAPSULES, THRICE DAILY
     Route: 048
     Dates: start: 20161024, end: 20170124
  14. WINUF [Concomitant]
     Indication: NUTRITIONAL SUPPLEMENTATION
     Dosage: 1 BAG, ONCE DAILY
     Route: 042
     Dates: start: 20161118, end: 20161121
  15. EMEND (FOSAPREPITANT DIMEGLUMINE) [Suspect]
     Active Substance: FOSAPREPITANT DIMEGLUMINE
     Dosage: 150 MG, ONCE
     Route: 042
     Dates: start: 20170113, end: 20170113
  16. UNISTIN [Concomitant]
     Dosage: 10 MG, ONCE DAILY, CYCLE 2
     Route: 042
     Dates: start: 20161202, end: 20161202
  17. UNISTIN [Concomitant]
     Dosage: 100 MG, ONCE DAILY, CYCLE 4
     Route: 042
     Dates: start: 20170113, end: 20170113
  18. DEXAMETHASONE SODIUM PHOSPHATE. [Concomitant]
     Active Substance: DEXAMETHASONE SODIUM PHOSPHATE
     Dosage: 2 AMPULES, TWICE DAILY
     Route: 042
     Dates: start: 20161202, end: 20161202
  19. DEXAMETHASONE SODIUM PHOSPHATE. [Concomitant]
     Active Substance: DEXAMETHASONE SODIUM PHOSPHATE
     Dosage: 1 AMPULE, THRICE DAILY
     Route: 042
     Dates: start: 20161203, end: 20161203
  20. DEXAMETHASONE SODIUM PHOSPHATE. [Concomitant]
     Active Substance: DEXAMETHASONE SODIUM PHOSPHATE
     Dosage: 1 AMPULE, THRICE DAILY
     Route: 042
     Dates: start: 20161204, end: 20161204
  21. ALOXI [Concomitant]
     Active Substance: PALONOSETRON HYDROCHLORIDE
     Dosage: UNIT:1 VI, ONCE DAILY
     Route: 042
     Dates: start: 20161202, end: 20161202
  22. FOLIC ACID. [Concomitant]
     Active Substance: FOLIC ACID
     Indication: PROPHYLAXIS
     Dosage: 1 TABLET, ONCE DAILY
     Route: 048
     Dates: start: 20161103
  23. LASIX [Concomitant]
     Active Substance: FUROSEMIDE
     Dosage: 1 AMPULE, ONCE DAILY
     Route: 042
     Dates: start: 20161202, end: 20161202
  24. MISOPROSTOL. [Concomitant]
     Active Substance: MISOPROSTOL
     Indication: GASTRIC ULCER
     Dosage: 1 TABLET, QD
     Route: 048
     Dates: start: 20161112, end: 20161114
  25. MANNITOL. [Concomitant]
     Active Substance: MANNITOL
     Dosage: 1 BT, QD
     Route: 042
     Dates: start: 20161223, end: 20161223
  26. EMEND (FOSAPREPITANT DIMEGLUMINE) [Suspect]
     Active Substance: FOSAPREPITANT DIMEGLUMINE
     Dosage: 150 MG, ONCE
     Route: 042
     Dates: start: 20161223, end: 20161223
  27. UNISTIN [Concomitant]
     Dosage: 100 MG, ONCE DAILY, CYCLE 2
     Route: 042
     Dates: start: 20161202, end: 20161202
  28. ALIMTA [Concomitant]
     Active Substance: PEMETREXED DISODIUM
     Indication: NON-SMALL CELL LUNG CANCER
     Dosage: 950 MG, ONCE DAILY, CYCLE 1
     Route: 042
     Dates: start: 20161111, end: 20161111
  29. ALIMTA [Concomitant]
     Active Substance: PEMETREXED DISODIUM
     Dosage: 950 MG, ONCE DAILY, CYCLE 4
     Route: 042
     Dates: start: 20170113, end: 20170113
  30. DEXAMETHASONE SODIUM PHOSPHATE. [Concomitant]
     Active Substance: DEXAMETHASONE SODIUM PHOSPHATE
     Dosage: 1 AMPULE, ONCE DAILY
     Route: 042
     Dates: start: 20161205, end: 20161205
  31. DEXAMETHASONE SODIUM PHOSPHATE. [Concomitant]
     Active Substance: DEXAMETHASONE SODIUM PHOSPHATE
     Dosage: 2 AMPULES, TWICE DAILY
     Route: 042
     Dates: start: 20161223, end: 20161223
  32. DEXAMETHASONE SODIUM PHOSPHATE. [Concomitant]
     Active Substance: DEXAMETHASONE SODIUM PHOSPHATE
     Dosage: 1 AMPULE, TWICE DAILY
     Route: 042
     Dates: start: 20161224, end: 20161226
  33. DEXAMETHASONE SODIUM PHOSPHATE. [Concomitant]
     Active Substance: DEXAMETHASONE SODIUM PHOSPHATE
     Dosage: 2 AMPULES, TWICE DAILY
     Route: 042
     Dates: start: 20170113, end: 20170113
  34. TARGIN [Concomitant]
     Active Substance: NALOXONE HYDROCHLORIDE\OXYCODONE HYDROCHLORIDE
     Indication: CANCER PAIN
     Dosage: 1 TABLET, TWICE DAILY
     Route: 048
     Dates: start: 20161118, end: 20170110
  35. CODAEWON [Concomitant]
     Indication: COUGH
     Dosage: 1 TABLET, THRICE DAILY
     Route: 048
     Dates: start: 20161103
  36. LASIX [Concomitant]
     Active Substance: FUROSEMIDE
     Indication: CHEMOTHERAPY
     Dosage: 1 AMPULE, ONCE DAILY
     Route: 042
     Dates: start: 20161111, end: 20161111
  37. LASIX [Concomitant]
     Active Substance: FUROSEMIDE
     Dosage: 1 AMPULE, ONCE DAILY
     Route: 042
     Dates: start: 20161223, end: 20161223
  38. EMEND (FOSAPREPITANT DIMEGLUMINE) [Suspect]
     Active Substance: FOSAPREPITANT DIMEGLUMINE
     Dosage: 150 MG, ONCE
     Route: 042
     Dates: start: 20161202, end: 20161202
  39. ALIMTA [Concomitant]
     Active Substance: PEMETREXED DISODIUM
     Dosage: 950 MG, ONCE DAILY, CYCLE 2
     Route: 042
     Dates: start: 20161202, end: 20161202
  40. DEXAMETHASONE SODIUM PHOSPHATE. [Concomitant]
     Active Substance: DEXAMETHASONE SODIUM PHOSPHATE
     Dosage: 1 AMPULE, ONCE DAILY
     Route: 042
     Dates: start: 20170116, end: 20170116
  41. CODEINE [Concomitant]
     Active Substance: CODEINE
     Indication: CANCER PAIN
     Dosage: 1 TABLET, THRICE DAILY
     Route: 048
     Dates: start: 20161110, end: 20161110
  42. POTASSIUM CHLORIDE. [Concomitant]
     Active Substance: POTASSIUM CHLORIDE
     Dosage: 0.5 AMPULE, TWICE DAILY
     Route: 042
     Dates: start: 20170113, end: 20170113
  43. MAGNESIUM SULFATE. [Concomitant]
     Active Substance: MAGNESIUM SULFATE
     Dosage: 0.5 AMPULE, TWICE DAILY
     Route: 042
     Dates: start: 20170113, end: 20170113
  44. UNISTIN [Concomitant]
     Indication: NON-SMALL CELL LUNG CANCER
     Dosage: 10 MG, ONCE DAILY, CYCLE 1
     Route: 042
     Dates: start: 20161111, end: 20161111
  45. DEXAMETHASONE SODIUM PHOSPHATE. [Concomitant]
     Active Substance: DEXAMETHASONE SODIUM PHOSPHATE
     Indication: PROPHYLAXIS OF NAUSEA AND VOMITING
     Dosage: 2 AMPULES, TWICE DAILY
     Route: 042
     Dates: start: 20161111, end: 20161111
  46. DEXAMETHASONE SODIUM PHOSPHATE. [Concomitant]
     Active Substance: DEXAMETHASONE SODIUM PHOSPHATE
     Dosage: 1 AMPULES, TWICE DAILY
     Route: 042
     Dates: start: 20170115, end: 20170115
  47. ALOXI [Concomitant]
     Active Substance: PALONOSETRON HYDROCHLORIDE
     Dosage: UNIT:1 VI, ONCE DAILY
     Route: 042
     Dates: start: 20161223, end: 20161223
  48. LASIX [Concomitant]
     Active Substance: FUROSEMIDE
     Dosage: 1 AMPULE, ONCE DAILY
     Route: 042
     Dates: start: 20170113, end: 20170113
  49. MAGNESIUM SULFATE. [Concomitant]
     Active Substance: MAGNESIUM SULFATE
     Indication: FLUID REPLACEMENT
     Dosage: 0.5 AMPULE, TWICE DAILY
     Route: 042
     Dates: start: 20161111, end: 20161111
  50. MANNITOL. [Concomitant]
     Active Substance: MANNITOL
     Dosage: 1 BT, QD
     Route: 042
     Dates: start: 20170113, end: 20170113
  51. EMEND (FOSAPREPITANT DIMEGLUMINE) [Suspect]
     Active Substance: FOSAPREPITANT DIMEGLUMINE
     Indication: PROPHYLAXIS OF NAUSEA AND VOMITING
     Dosage: 150 MG, ONCE
     Route: 042
     Dates: start: 20161111, end: 20161111
  52. CODEINE [Concomitant]
     Active Substance: CODEINE
     Dosage: 1 TABLET, FOUR TIMES A DAY
     Route: 048
     Dates: start: 20161111, end: 20161122
  53. DEXAMETHASONE. [Concomitant]
     Active Substance: DEXAMETHASONE
     Indication: PROPHYLAXIS OF NAUSEA AND VOMITING
     Dosage: 10 TABLETS, TWICE DAILY
     Route: 048
     Dates: start: 20161112, end: 20161114
  54. ALOXI [Concomitant]
     Active Substance: PALONOSETRON HYDROCHLORIDE
     Indication: PROPHYLAXIS OF NAUSEA AND VOMITING
     Dosage: UNIT:1 VI, ONCE DAILY
     Route: 042
     Dates: start: 20161111, end: 20161111
  55. MACPERAN [Concomitant]
     Active Substance: METOCLOPRAMIDE HYDROCHLORIDE
     Indication: PROPHYLAXIS OF NAUSEA AND VOMITING
     Dosage: 1 TABLET, ONCE DAILY
     Route: 048
     Dates: start: 20161112, end: 20161114
  56. RABET [Concomitant]
     Indication: GASTRIC ULCER
     Dosage: 1 TABLET, ONCE DAILY
     Route: 048
     Dates: start: 20151026
  57. ACTINAMIDE [Concomitant]
     Indication: VITAMIN SUPPLEMENTATION
     Dosage: 1 AMPULE, ONCE DAILY
     Route: 030
     Dates: start: 20161103, end: 20161103
  58. ACTINAMIDE [Concomitant]
     Dosage: 1 AMPULE, ONCE DAILY
     Route: 030
     Dates: start: 20170111, end: 20170111
  59. MANNITOL. [Concomitant]
     Active Substance: MANNITOL
     Indication: PREMEDICATION
     Dosage: 1 BT, QD
     Route: 042
     Dates: start: 20161111, end: 20161111

REACTIONS (5)
  - Hyperkalaemia [Recovered/Resolved]
  - Nausea [Recovered/Resolved]
  - Nausea [Recovered/Resolved]
  - Nausea [Recovered/Resolved]
  - Decreased appetite [Recovered/Resolved]

NARRATIVE: CASE EVENT DATE: 20161118
